FAERS Safety Report 18936069 (Version 1)
Quarter: 2021Q1

REPORT INFORMATION
  Report Type: Spontaneous
  Country: US (occurrence: US)
  Receive Date: 20210224
  Receipt Date: 20210224
  Transmission Date: 20210420
  Serious: No
  Sender: FDA-Public Use
  Company Number: US-BAYER-2021-067734

PATIENT
  Age: 40 Year
  Sex: Female

DRUGS (8)
  1. MECLIZINE [Concomitant]
     Active Substance: MECLIZINE HYDROCHLORIDE
  2. COLESTIPOL [Concomitant]
     Active Substance: COLESTIPOL
  3. ALEVE [Suspect]
     Active Substance: NAPROXEN SODIUM
  4. REGEN [CYANOCOBALAMIN] [Concomitant]
  5. COVID?19 VACCINE NOS. [Concomitant]
     Active Substance: COVID-19 VACCINE NOS
     Dosage: UNK
     Dates: start: 20210121
  6. VITAMIN D NOS [Concomitant]
     Active Substance: VITAMIN D NOS
  7. VITAMIN C + ZINC [Concomitant]
     Active Substance: ASCORBIC ACID\ZINC
  8. MAGNES [Concomitant]

REACTIONS (2)
  - Dizziness [Not Recovered/Not Resolved]
  - Headache [Not Recovered/Not Resolved]

NARRATIVE: CASE EVENT DATE: 20210125
